FAERS Safety Report 7711970-8 (Version None)
Quarter: 2011Q3

REPORT INFORMATION
  Report Type: 
  Country: None (occurrence: None)
  Receive Date: 20110822
  Receipt Date: 20110818
  Transmission Date: 20111222
  Serious: Yes (Other)
  Sender: FDA-Public Use
  Company Number: 2011SP039074

PATIENT
  Age: 13 Year
  Sex: Male

DRUGS (4)
  1. PROPOFOL [Concomitant]
  2. LAUGHING GAS [Concomitant]
  3. SEVOFLURANE [Concomitant]
  4. ROCURONIUM BROMIDE [Suspect]
     Indication: NEUROMUSCULAR BLOCKING THERAPY
     Dosage: 50,10 MG, IV
     Route: 042
     Dates: start: 20110808, end: 20110808

REACTIONS (3)
  - ERYTHEMA [None]
  - COUGH [None]
  - HYPERTHERMIA MALIGNANT [None]
